FAERS Safety Report 25068794 (Version 3)
Quarter: 2025Q2

REPORT INFORMATION
  Report Type: Report from Study
  Country: US (occurrence: US)
  Receive Date: 20250312
  Receipt Date: 20250402
  Transmission Date: 20250717
  Serious: Yes (Hospitalization)
  Sender: BIOGEN
  Company Number: US-BIOGEN-2025BI01300462

PATIENT
  Sex: Female

DRUGS (17)
  1. VUMERITY [Suspect]
     Active Substance: DIROXIMEL FUMARATE
     Indication: Multiple sclerosis
     Route: 050
     Dates: start: 2020
  2. BIOTIN [Concomitant]
     Active Substance: BIOTIN
     Indication: Product used for unknown indication
     Route: 050
  3. BIOTIN [Concomitant]
     Active Substance: BIOTIN
     Route: 050
     Dates: start: 20190930
  4. COENZYME Q10 [Concomitant]
     Active Substance: DIETARY SUPPLEMENT\UBIDECARENONE
     Indication: Product used for unknown indication
     Route: 050
  5. COENZYME Q10 [Concomitant]
     Active Substance: DIETARY SUPPLEMENT\UBIDECARENONE
     Route: 050
     Dates: start: 20190930
  6. DALFAMPRIDINE [Concomitant]
     Active Substance: DALFAMPRIDINE
     Indication: Product used for unknown indication
     Dosage: TAKE 1 TABLET BY MOUTH TWICE DAILY
     Route: 050
     Dates: start: 20241217
  7. ERGOCALCIFEROL [Concomitant]
     Active Substance: ERGOCALCIFEROL
     Indication: Product used for unknown indication
     Route: 050
  8. PHENTERMINE [Concomitant]
     Active Substance: PHENTERMINE
     Indication: Product used for unknown indication
     Dosage: 1-2 TABLETS ONCE A DAY
     Route: 050
  9. VITAMIN B12 [Concomitant]
     Active Substance: CYANOCOBALAMIN
     Indication: Product used for unknown indication
     Route: 050
  10. lions mune mushroom [Concomitant]
     Indication: Product used for unknown indication
     Route: 050
     Dates: start: 20190930
  11. Hair skin and nails gummies (Biotin W/ Vitamins C and E) [Concomitant]
     Indication: Product used for unknown indication
     Route: 050
     Dates: start: 20190930
  12. Vitamin B-complex - Folic Acid [Concomitant]
     Indication: Product used for unknown indication
     Route: 050
     Dates: start: 20190930
  13. CHOLECALCIFEROL [Concomitant]
     Active Substance: CHOLECALCIFEROL
     Indication: Product used for unknown indication
     Dosage: 25 MCG (1000 UNIT)
     Route: 050
     Dates: start: 20190930
  14. CHOLECALCIFEROL [Concomitant]
     Active Substance: CHOLECALCIFEROL
     Dosage: 50000 UNIT CAPSULE, 1 CAPSULE BY MOUTH ONCE A WEEK
     Route: 050
  15. Calcium-Magnesium-Zinc [Concomitant]
     Indication: Product used for unknown indication
     Route: 050
     Dates: start: 20190930
  16. Cyanocobalamin-cobamamide [Concomitant]
     Indication: Product used for unknown indication
     Route: 050
     Dates: start: 20190930
  17. VALIUM [Concomitant]
     Active Substance: DIAZEPAM
     Indication: Product used for unknown indication
     Route: 050
     Dates: start: 20210922

REACTIONS (5)
  - Multiple sclerosis relapse [Unknown]
  - Agraphia [Not Recovered/Not Resolved]
  - Gait disturbance [Not Recovered/Not Resolved]
  - Balance disorder [Not Recovered/Not Resolved]
  - Flushing [Not Recovered/Not Resolved]
